FAERS Safety Report 7560586-5 (Version None)
Quarter: 2011Q2

REPORT INFORMATION
  Report Type: 
  Country: None (occurrence: None)
  Receive Date: 20110621
  Receipt Date: 20101223
  Transmission Date: 20111010
  Serious: No
  Sender: FDA-Public Use
  Company Number: US-ASTRAZENECA-2010SE60829

PATIENT
  Sex: Female

DRUGS (8)
  1. MULTIPLE SUPPLEMENTS [Concomitant]
  2. AMBIEN [Concomitant]
  3. CHEMO-6MP [Concomitant]
  4. XANAX [Concomitant]
  5. ACIPHEX [Concomitant]
  6. ENTOCORT EC [Suspect]
     Route: 048
  7. VICODIN [Concomitant]
  8. PROZAC [Concomitant]

REACTIONS (2)
  - DRUG DOSE OMISSION [None]
  - CROHN'S DISEASE [None]
